FAERS Safety Report 4441122-9 (Version None)
Quarter: 2004Q3

REPORT INFORMATION
  Report Type: 
  Country: None (occurrence: None)
  Receive Date: 20040902
  Receipt Date: 20040902
  Transmission Date: 20050211
  Serious: Yes (Other)
  Sender: FDA-Public Use
  Company Number: None

PATIENT
  Age: 56 Year
  Sex: Female
  Weight: 58.9676 kg

DRUGS (4)
  1. DOXYCICLINE 100 MG IV [Suspect]
     Indication: LYME DISEASE
     Dosage: 100 MG IV Q 12
     Route: 042
     Dates: start: 20040304
  2. DOXYCICLINE 100 MG IV [Suspect]
     Indication: LYME DISEASE
     Dosage: 100 MG IV Q 12
     Route: 042
     Dates: start: 20040325
  3. ROCEPHIN [Concomitant]
  4. CLAFORAN [Concomitant]

REACTIONS (2)
  - BLOOD PRESSURE DECREASED [None]
  - VISION BLURRED [None]
